FAERS Safety Report 6818472-1 (Version None)
Quarter: 2010Q3

REPORT INFORMATION
  Report Type: 
  Country: None (occurrence: None)
  Receive Date: 20100706
  Receipt Date: 20080603
  Transmission Date: 20110219
  Serious: Yes (Other)
  Sender: FDA-Public Use
  Company Number: US-PFIZER INC-2008043382

PATIENT
  Sex: Female
  Weight: 9.091 kg

DRUGS (3)
  1. AZITHROMYCIN [Suspect]
     Indication: PYREXIA
     Route: 048
     Dates: start: 20080510, end: 20080510
  2. AZITHROMYCIN [Suspect]
     Indication: OROPHARYNGEAL PAIN
     Route: 048
     Dates: start: 20080511, end: 20080514
  3. AZITHROMYCIN [Suspect]
     Indication: EAR INFECTION

REACTIONS (2)
  - BLISTER [None]
  - SKIN EXFOLIATION [None]
